FAERS Safety Report 4917373-3 (Version None)
Quarter: 2006Q1

REPORT INFORMATION
  Report Type: 
  Country: None (occurrence: None)
  Receive Date: 20060221
  Receipt Date: 20060216
  Transmission Date: 20060701
  Serious: Yes (Disabling)
  Sender: FDA-Public Use
  Company Number: US-GLAXOSMITHKLINE-A0593988A

PATIENT
  Sex: Male

DRUGS (2)
  1. MALARONE [Suspect]
     Indication: MALARIA PROPHYLAXIS
     Dosage: 1TAB PER DAY
     Route: 048
  2. BENZODIAZEPINE [Concomitant]

REACTIONS (4)
  - ERYTHEMA [None]
  - NAUSEA [None]
  - PYREXIA [None]
  - UROGENITAL DISORDER [None]
